FAERS Safety Report 4946010-7 (Version None)
Quarter: 2006Q1

REPORT INFORMATION
  Report Type: 
  Country: None (occurrence: None)
  Receive Date: 20060118
  Receipt Date: 20050822
  Transmission Date: 20060701
  Serious: Yes (Hospitalization)
  Sender: FDA-Public Use
  Company Number: 0507-331

PATIENT
  Age: 36 Hour
  Sex: Male
  Weight: 0.69 kg

DRUGS (5)
  1. CUROSURF [Suspect]
     Indication: ACUTE RESPIRATORY DISTRESS SYNDROME
     Dosage: 2.5ML, ENDOTRACTEALLY
     Route: 007
     Dates: start: 20050715
  2. CUROSURF [Suspect]
     Dosage: 1.25ML, AGAIN 13 HRS LATER
     Dates: start: 20050715
  3. AMPCILLIN [Concomitant]
  4. GEMTAMICINE [Concomitant]
  5. HYDROCORTISONE [Concomitant]

REACTIONS (1)
  - PULMONARY HAEMORRHAGE [None]
